FAERS Safety Report 10218250 (Version 1)
Quarter: 2014Q2

REPORT INFORMATION
  Report Type: Spontaneous
  Country: US (occurrence: US)
  Receive Date: 20140605
  Receipt Date: 20140605
  Transmission Date: 20141212
  Serious: Yes (Other)
  Sender: FDA-Public Use
  Company Number: US-BRISTOL-MYERS SQUIBB COMPANY-20887410

PATIENT
  Age: 55 Year
  Sex: Female
  Weight: 90.25 kg

DRUGS (8)
  1. ABILIFY [Suspect]
     Indication: SCHIZOAFFECTIVE DISORDER BIPOLAR TYPE
     Route: 048
  2. FUROSEMIDE [Concomitant]
  3. CARVEDILOL [Concomitant]
  4. LOSARTAN [Concomitant]
  5. NIFEDIPINE [Concomitant]
     Dosage: 1DF=90 UNITS NOS
  6. DEPAKOTE [Concomitant]
  7. BABY ASPIRIN [Concomitant]
  8. VITAMIN D [Concomitant]

REACTIONS (11)
  - Atrial fibrillation [Not Recovered/Not Resolved]
  - Neuropathy peripheral [Not Recovered/Not Resolved]
  - Dyspnoea [Not Recovered/Not Resolved]
  - Weight increased [Not Recovered/Not Resolved]
  - Eyelid oedema [Not Recovered/Not Resolved]
  - Urinary incontinence [Not Recovered/Not Resolved]
  - Drooling [Not Recovered/Not Resolved]
  - Dysphagia [Not Recovered/Not Resolved]
  - Balance disorder [Not Recovered/Not Resolved]
  - Amnesia [Not Recovered/Not Resolved]
  - Anxiety [Unknown]
